FAERS Safety Report 7435665-3 (Version None)
Quarter: 2011Q2

REPORT INFORMATION
  Report Type: 
  Country: None (occurrence: None)
  Receive Date: 20110425
  Receipt Date: 20110302
  Transmission Date: 20111010
  Serious: Yes (Other)
  Sender: FDA-Public Use
  Company Number: PHHY2011GB22672

PATIENT
  Age: 52 Year
  Sex: Female

DRUGS (10)
  1. BASILIXIMAB [Suspect]
     Dosage: UNK
  2. METOPROLOL [Concomitant]
     Dosage: UNK
  3. SIROLIMUS [Suspect]
     Dosage: UNK
  4. TRIMETHOPRIM [Concomitant]
  5. HYDRALAZINE [Concomitant]
     Dosage: UNK
  6. FAMOTIDINE [Concomitant]
     Dosage: UNK
  7. MYCOPHENOLATE MOFETIL [Suspect]
     Dosage: 500 MG, BID
  8. SIMVASTATIN [Concomitant]
     Dosage: UNK
  9. TACROLIMUS [Suspect]
     Dosage: UNK
  10. VALGANCICLOVIR [Concomitant]
     Dosage: UNK

REACTIONS (3)
  - PAIN [None]
  - FOOT FRACTURE [None]
  - BONE MARROW OEDEMA [None]
